FAERS Safety Report 14364823 (Version 13)
Quarter: 2020Q2

REPORT INFORMATION
  Report Type: Spontaneous
  Country: US (occurrence: US)
  Receive Date: 20180108
  Receipt Date: 20200528
  Transmission Date: 20200713
  Serious: Yes (Death, Hospitalization)
  Sender: FDA-Public Use
  Company Number: US-ACTELION-A-NJ2018-165356

PATIENT
  Age: 55 Year
  Sex: Female
  Weight: 86.17 kg

DRUGS (6)
  1. ADCIRCA [Concomitant]
     Active Substance: TADALAFIL
  2. LETAIRIS [Concomitant]
     Active Substance: AMBRISENTAN
  3. VELETRI [Suspect]
     Active Substance: EPOPROSTENOL
     Indication: PULMONARY ARTERIAL HYPERTENSION
     Dosage: 13.25 NG/KG, PER MIN
     Route: 042
     Dates: start: 20190801, end: 20200513
  4. VELETRI [Suspect]
     Active Substance: EPOPROSTENOL
     Dosage: 12.75 NG/KG, PER MIN
     Route: 042
  5. VELETRI [Suspect]
     Active Substance: EPOPROSTENOL
     Dosage: 11 NG/KG, PER MIN
     Route: 042
  6. VELETRI [Suspect]
     Active Substance: EPOPROSTENOL
     Dosage: 15 NG/KG, PER MIN
     Route: 042

REACTIONS (11)
  - Death [Fatal]
  - Pneumonia [Unknown]
  - Rib fracture [Unknown]
  - Dyspnoea exertional [Unknown]
  - Fall [Unknown]
  - Chest pain [Unknown]
  - Unevaluable event [Unknown]
  - Fluid overload [Unknown]
  - Palpitations [Unknown]
  - Dyspnoea [Unknown]
  - Dyspnoea at rest [Unknown]

NARRATIVE: CASE EVENT DATE: 20200513
